FAERS Safety Report 5787423-3 (Version None)
Quarter: 2008Q2

REPORT INFORMATION
  Report Type: 
  Country: None (occurrence: None)
  Receive Date: 20080623
  Receipt Date: 20080623
  Transmission Date: 20081010
  Serious: Yes (Life-Threatening, Hospitalization, Disabling)
  Sender: FDA-Public Use
  Company Number: None

PATIENT
  Age: 51 Year
  Sex: Female
  Weight: 63.5036 kg

DRUGS (3)
  1. WELLBUTRIN XL [Suspect]
     Indication: ARTHRALGIA
     Dosage: 300 MG BID PO
     Route: 048
  2. WELLBUTRIN XL [Suspect]
     Indication: DEPRESSION
     Dosage: 300 MG BID PO
     Route: 048
  3. WELLBUTRIN XL [Suspect]
     Indication: MYALGIA
     Dosage: 300 MG BID PO
     Route: 048

REACTIONS (17)
  - ANGER [None]
  - ANXIETY [None]
  - BACK PAIN [None]
  - DEPRESSION [None]
  - FAMILY STRESS [None]
  - HOSTILITY [None]
  - IMPULSIVE BEHAVIOUR [None]
  - INSOMNIA [None]
  - INTENTIONAL OVERDOSE [None]
  - IRRITABILITY [None]
  - MENTAL DISORDER [None]
  - MOOD ALTERED [None]
  - PAIN [None]
  - PANIC ATTACK [None]
  - RESTLESSNESS [None]
  - STRESS AT WORK [None]
  - SUICIDE ATTEMPT [None]
